FAERS Safety Report 21198461 (Version 1)
Quarter: 2022Q3

REPORT INFORMATION
  Report Type: Spontaneous
  Country: IT (occurrence: IT)
  Receive Date: 20220811
  Receipt Date: 20220811
  Transmission Date: 20221027
  Serious: Yes (Hospitalization)
  Sender: FDA-Public Use
  Company Number: IT-MINISAL02-879440

PATIENT
  Age: 75 Year
  Sex: Female

DRUGS (4)
  1. METFORMIN [Suspect]
     Active Substance: METFORMIN HYDROCHLORIDE
     Indication: Type 2 diabetes mellitus
     Dosage: 1 GRAM, 3 TIMES A DAY(1000 MG  1 CP ORE 8 + 1 CP ORE 12 + 1 CP ORE 18)
     Route: 048
  2. HUMALOG [Suspect]
     Active Substance: INSULIN LISPRO
     Indication: Type 2 diabetes mellitus
     Dosage: 21 INTERNATIONAL UNIT(21 U AI 3 PASTI)
     Route: 058
  3. LANTUS [Suspect]
     Active Substance: INSULIN GLARGINE
     Indication: Type 2 diabetes mellitus
     Dosage: 38 INTERNATIONAL UNIT, ONCE A DAY(38 U LA MATTINA)
     Route: 058
  4. DERMESTRIL SEPTEM [Concomitant]
     Indication: Hormone replacement therapy
     Dosage: 50 MCG CEROTTO DA SOSTITUIRE OGNI DOMENICA
     Route: 062

REACTIONS (1)
  - Hypoglycaemia [Recovering/Resolving]

NARRATIVE: CASE EVENT DATE: 20220505
